FAERS Safety Report 16400862 (Version 8)
Quarter: 2020Q3

REPORT INFORMATION
  Report Type: Spontaneous
  Country: US (occurrence: US)
  Receive Date: 20190606
  Receipt Date: 20200819
  Transmission Date: 20201102
  Serious: Yes (Other)
  Sender: FDA-Public Use
  Company Number: US-PFIZER INC-2016180397

PATIENT
  Age: 24 Year
  Sex: Male

DRUGS (3)
  1. BENEFIX [Suspect]
     Active Substance: COAGULATION FACTOR IX RECOMBINANT HUMAN\ISOPROPYL ALCOHOL
     Dosage: 7300 IU, DAILY (73 KG, 7300 UNITS (+/?10%) = 100 UNITS/KG DAILY X1 ON DEMAND FOR A BLEED)
  2. BENEFIX [Suspect]
     Active Substance: COAGULATION FACTOR IX RECOMBINANT HUMAN\ISOPROPYL ALCOHOL
     Indication: FACTOR IX DEFICIENCY
     Dosage: 6700 UNITS, AS NEEDED (DAILY ON DEMAND )
  3. BENEFIX [Suspect]
     Active Substance: COAGULATION FACTOR IX RECOMBINANT HUMAN\ISOPROPYL ALCOHOL
     Dosage: 7300 IU, DAILY (73KG, 7300 UNITS (+/? 110%)= 100 UNITS/ KG DAILY X3; THEN ON DEMAND

REACTIONS (1)
  - Haemorrhage [Unknown]
